FAERS Safety Report 5050669-6 (Version None)
Quarter: 2006Q3

REPORT INFORMATION
  Report Type: 
  Country: None (occurrence: None)
  Receive Date: 20060710
  Receipt Date: 20060626
  Transmission Date: 20061208
  Serious: Yes (Hospitalization)
  Sender: FDA-Public Use
  Company Number: 2006068086

PATIENT
  Age: 61 Year
  Sex: Female

DRUGS (6)
  1. MEDROL [Suspect]
     Indication: ILL-DEFINED DISORDER
     Dosage: ORAL
     Route: 048
     Dates: start: 20060310, end: 20060329
  2. PANTOPRAZOLE SODIUM [Suspect]
     Indication: ILL-DEFINED DISORDER
     Dosage: 40 MG (1 IN 1 D), ORAL
     Route: 048
     Dates: start: 20060310, end: 20060328
  3. ACETAMINOPHEN [Suspect]
     Indication: ILL-DEFINED DISORDER
     Dosage: ORAL
     Route: 048
     Dates: start: 20060310, end: 20060329
  4. URABNYL (CLOBAZAM) [Suspect]
     Indication: ILL-DEFINED DISORDER
     Dosage: 5 MG (1 IN 1 D), ORAL
     Route: 048
     Dates: start: 20060310, end: 20060329
  5. ZOLPIDEM TARTRATE [Suspect]
     Indication: ILL-DEFINED DISORDER
     Dosage: ORAL
     Route: 048
     Dates: start: 20060310, end: 20060328
  6. LAMICTAL [Suspect]
     Indication: ILL-DEFINED DISORDER
     Dosage: 50 MG (1 IN 1 D), ORAL
     Route: 048
     Dates: start: 20060310, end: 20060329

REACTIONS (6)
  - CHEILITIS [None]
  - CONJUNCTIVITIS [None]
  - FACE OEDEMA [None]
  - PALATAL DISORDER [None]
  - PURPURA [None]
  - RASH MACULO-PAPULAR [None]
